FAERS Safety Report 8261587-4 (Version None)
Quarter: 2012Q2

REPORT INFORMATION
  Report Type: 
  Country: None (occurrence: None)
  Receive Date: 20120405
  Receipt Date: 20120326
  Transmission Date: 20120825
  Serious: Yes (Hospitalization)
  Sender: FDA-Public Use
  Company Number: US-BAYER-2011-111474

PATIENT
  Age: 29 Year
  Sex: Female
  Weight: 67.574 kg

DRUGS (6)
  1. YASMIN [Suspect]
     Dosage: UNK
     Dates: start: 20040801, end: 20070601
  2. VALIUM [Concomitant]
     Indication: HEADACHE
     Dosage: 5 UNK, UNK
  3. BUPROPION HCL [Concomitant]
     Indication: ANXIETY
     Dosage: 150 MG, QD
  4. HYDROCODONE BITARTRATE [Concomitant]
  5. YAZ [Suspect]
     Dosage: UNK
     Dates: start: 20080301, end: 20101201
  6. BUTALBITAL [Concomitant]
     Indication: MIGRAINE

REACTIONS (3)
  - CHOLECYSTITIS CHRONIC [None]
  - FOCAL NODULAR HYPERPLASIA [None]
  - BENIGN HEPATIC NEOPLASM [None]
